FAERS Safety Report 23508001 (Version 2)
Quarter: 2024Q1

REPORT INFORMATION
  Report Type: Spontaneous
  Country: FR (occurrence: FR)
  Receive Date: 20240209
  Receipt Date: 20240312
  Transmission Date: 20240410
  Serious: Yes (Hospitalization, Other)
  Sender: FDA-Public Use
  Company Number: FR-ELI_LILLY_AND_COMPANY-FR202401017193

PATIENT
  Age: 67 Year
  Sex: Female

DRUGS (6)
  1. ABEMACICLIB [Suspect]
     Active Substance: ABEMACICLIB
     Indication: Breast cancer
     Dosage: 150 MG, BID
     Route: 065
     Dates: start: 20230901
  2. ABEMACICLIB [Suspect]
     Active Substance: ABEMACICLIB
     Dosage: UNK, UNKNOWN
     Route: 065
     Dates: start: 20231013, end: 20240111
  3. LERCANIDIPINE [Concomitant]
     Active Substance: LERCANIDIPINE
     Indication: Hypertension
     Dosage: UNK, UNKNOWN
     Route: 065
  4. PRAVASTATIN [Concomitant]
     Active Substance: PRAVASTATIN
     Indication: Hypercholesterolaemia
     Dosage: UNK, UNKNOWN
     Route: 065
  5. ACLASTA [Concomitant]
     Active Substance: ZOLEDRONIC ACID
     Indication: Osteoporosis
     Dosage: UNK, UNKNOWN
     Route: 065
  6. LETROZOLE [Concomitant]
     Active Substance: LETROZOLE
     Indication: Product used for unknown indication
     Dosage: 2.5 MG, DAILY
     Route: 065

REACTIONS (6)
  - Middle cerebral artery stroke [Recovered/Resolved with Sequelae]
  - Thrombosis [Recovered/Resolved with Sequelae]
  - Atrial fibrillation [Unknown]
  - Sinus tachycardia [Unknown]
  - Dysarthria [Unknown]
  - Facial paralysis [Unknown]

NARRATIVE: CASE EVENT DATE: 20240111
